FAERS Safety Report 4659144-1 (Version None)
Quarter: 2005Q2

REPORT INFORMATION
  Report Type: 
  Country: None (occurrence: None)
  Receive Date: 20050509
  Receipt Date: 20050426
  Transmission Date: 20051028
  Serious: Yes (Other)
  Sender: FDA-Public Use
  Company Number: 2005043257

PATIENT
  Age: 31 Year
  Sex: Female
  Weight: 103 kg

DRUGS (4)
  1. GENOTONORM (SOMATROPIN) [Suspect]
     Indication: HYPOPITUITARISM
     Dosage: 0.3 MG (0.3 MG, DAILY)
     Dates: start: 20040921, end: 20050101
  2. LEVOTHYROXINE SODIUM [Concomitant]
  3. HYDROCORTISONE [Concomitant]
  4. DYDROGESTERONE (DYDROGESTERONE) [Concomitant]

REACTIONS (3)
  - CARPAL TUNNEL SYNDROME [None]
  - CONDITION AGGRAVATED [None]
  - THORACIC OUTLET SYNDROME [None]
